FAERS Safety Report 8554111-X (Version None)
Quarter: 2012Q3

REPORT INFORMATION
  Report Type: 
  Country: None (occurrence: None)
  Receive Date: 20120731
  Receipt Date: 20120726
  Transmission Date: 20120928
  Serious: Yes (Other)
  Sender: FDA-Public Use
  Company Number: PHHY2012CA065472

PATIENT
  Age: 62 Year
  Sex: Male

DRUGS (19)
  1. BISOPROLOL FUMARATE [Concomitant]
  2. OMEPRAZOLE [Concomitant]
  3. PLAVIX [Concomitant]
  4. QUININE SULFATE [Concomitant]
  5. RASILEZ [Suspect]
     Dosage: 1 DF, QD (225 MG)
     Route: 048
  6. LIPITOR [Concomitant]
  7. LYRICA [Concomitant]
  8. NOVORAPID [Concomitant]
  9. ONGLYZA [Concomitant]
  10. ASPIRIN [Concomitant]
  11. DEPO-TESTOSTERONE [Concomitant]
     Dosage: 100 MG/ML, UNK
  12. NPH INSULIN [Concomitant]
  13. BECLOMETHASONE DIPROPIONATE [Concomitant]
  14. CYCLOBENZAPRINE [Concomitant]
  15. FERROUS SULFATE TAB [Concomitant]
  16. CANDESARTAN CILEXETIL [Interacting]
     Dosage: 32 MG, QD
  17. METFORMIN HYDROCHLORIDE [Concomitant]
  18. ATACAND [Concomitant]
  19. LASIX [Concomitant]

REACTIONS (4)
  - DRUG INTERACTION [None]
  - HYPERKALAEMIA [None]
  - BLOOD CREATININE INCREASED [None]
  - AORTIC STENOSIS [None]
